FAERS Safety Report 17416049 (Version 2)
Quarter: 2020Q1

REPORT INFORMATION
  Report Type: Report from Study
  Country: TW (occurrence: TW)
  Receive Date: 20200213
  Receipt Date: 20200324
  Transmission Date: 20200409
  Serious: Yes (Hospitalization, Other)
  Sender: FDA-Public Use
  Company Number: TW-JNJFOC-20191216968

PATIENT
  Age: 86 Year
  Sex: Male

DRUGS (7)
  1. MAGNESIUM OXIDE. [Suspect]
     Active Substance: MAGNESIUM OXIDE
     Indication: ABDOMINAL DISCOMFORT
     Route: 048
     Dates: start: 20190903
  2. ZYTIGA [Suspect]
     Active Substance: ABIRATERONE ACETATE
     Indication: PROSTATE CANCER
     Dosage: QDAC
     Route: 048
     Dates: start: 20191127, end: 20200125
  3. MAGNESIUM OXIDE. [Suspect]
     Active Substance: MAGNESIUM OXIDE
     Indication: HYPERCHLORHYDRIA
  4. MAGNESIUM OXIDE. [Suspect]
     Active Substance: MAGNESIUM OXIDE
     Indication: CONSTIPATION
  5. MAGNESIUM OXIDE. [Suspect]
     Active Substance: MAGNESIUM OXIDE
     Indication: DYSPEPSIA
  6. BISACODYL. [Concomitant]
     Active Substance: BISACODYL
     Indication: CONSTIPATION
     Dosage: HS
     Route: 048
     Dates: start: 20190903
  7. DEXAMETHASONE. [Concomitant]
     Active Substance: DEXAMETHASONE
     Indication: PROSTATE CANCER
     Dosage: QDCC
     Route: 048
     Dates: start: 20191127, end: 20200125

REACTIONS (4)
  - Hyperglycaemia [Unknown]
  - Diarrhoea [Recovered/Resolved]
  - Product use complaint [Unknown]
  - Rash [Unknown]

NARRATIVE: CASE EVENT DATE: 20191211
